FAERS Safety Report 5362215-8 (Version None)
Quarter: 2007Q2

REPORT INFORMATION
  Report Type: 
  Country: None (occurrence: None)
  Receive Date: 20070619
  Receipt Date: 20070604
  Transmission Date: 20071010
  Serious: Yes (Hospitalization)
  Sender: FDA-Public Use
  Company Number: US-ELI_LILLY_AND_COMPANY-US200706000713

PATIENT
  Sex: Female

DRUGS (3)
  1. FORTEO [Suspect]
     Indication: OSTEOPOROSIS
     Dosage: 20 UG, UNK
     Dates: start: 20030101, end: 20050101
  2. FORTEO [Suspect]
     Dosage: 20 UG, UNK
     Dates: start: 20070301
  3. EVISTA [Suspect]
     Indication: OSTEOPOROSIS
     Dosage: 60 MG, UNK
     Route: 048
     Dates: start: 20050101, end: 20070201

REACTIONS (6)
  - ANXIETY [None]
  - ARTHRALGIA [None]
  - BONE PAIN [None]
  - FEELING COLD [None]
  - GALLBLADDER OPERATION [None]
  - HOT FLUSH [None]
